FAERS Safety Report 9163504 (Version 1)
Quarter: 2013Q1

REPORT INFORMATION
  Report Type: Spontaneous
  Country: US (occurrence: US)
  Receive Date: 20130314
  Receipt Date: 20130314
  Transmission Date: 20140127
  Serious: Yes (Other)
  Sender: FDA-Public Use
  Company Number: US-PFIZER INC-2013085130

PATIENT
  Age: 62 Year
  Sex: Female
  Weight: 81.63 kg

DRUGS (2)
  1. LYRICA [Suspect]
     Indication: FIBROMYALGIA
     Dosage: UNK, 1X/DAY
     Route: 048
     Dates: start: 201302, end: 201302
  2. HYDROCODONE [Concomitant]
     Indication: PAIN
     Dosage: UNK

REACTIONS (1)
  - Aphasia [Recovered/Resolved]
